FAERS Safety Report 10101739 (Version 1)
Quarter: 2014Q2

REPORT INFORMATION
  Report Type: Spontaneous
  Country: GB (occurrence: GB)
  Receive Date: 20140424
  Receipt Date: 20140424
  Transmission Date: 20141212
  Serious: Yes (Hospitalization)
  Sender: FDA-Public Use
  Company Number: GB-PFIZER INC-2014110033

PATIENT
  Age: 62 Year
  Sex: Male
  Weight: 100 kg

DRUGS (5)
  1. METFORMIN HCL [Suspect]
     Indication: TYPE 2 DIABETES MELLITUS
     Dosage: UNK
  2. DICLOFENAC [Suspect]
     Indication: ARTHRALGIA
     Dosage: UNK
  3. NITROFURANTOIN [Suspect]
     Indication: URINARY TRACT INFECTION
     Dosage: UNK
  4. CANDESARTAN [Suspect]
     Indication: HYPERTENSION
     Dosage: UNK
  5. INSULIN [Concomitant]
     Indication: DIABETES MELLITUS

REACTIONS (2)
  - Iatrogenic injury [Recovered/Resolved]
  - Renal failure acute [Recovered/Resolved]
